FAERS Safety Report 13658084 (Version 1)
Quarter: 2017Q2

REPORT INFORMATION
  Report Type: Spontaneous
  Country: US (occurrence: US)
  Receive Date: 20170616
  Receipt Date: 20170616
  Transmission Date: 20170830
  Serious: No
  Sender: FDA-Public Use
  Company Number: US-ALEXION PHARMACEUTICALS INC.-A201706536

PATIENT
  Sex: Male

DRUGS (1)
  1. STRENSIQ [Suspect]
     Active Substance: ASFOTASE ALFA
     Indication: HYPOPHOSPHATASIA
     Route: 058

REACTIONS (8)
  - Laboratory test abnormal [Unknown]
  - Vitamin B12 abnormal [Unknown]
  - Contusion [Unknown]
  - Blood glucose abnormal [Unknown]
  - Blood urea abnormal [Unknown]
  - Blood potassium abnormal [Unknown]
  - Blood thyroid stimulating hormone abnormal [Unknown]
  - Blood alkaline phosphatase abnormal [Unknown]
